FAERS Safety Report 7580694-2 (Version None)
Quarter: 2011Q2

REPORT INFORMATION
  Report Type: 
  Country: None (occurrence: None)
  Receive Date: 20110629
  Receipt Date: 20110620
  Transmission Date: 20111010
  Serious: Yes (Hospitalization)
  Sender: FDA-Public Use
  Company Number: US-AMGEN-USACT2011031232

PATIENT
  Sex: Female

DRUGS (5)
  1. BEVACIZUMAB [Concomitant]
     Indication: NEOPLASM MALIGNANT
     Dosage: UNK UNK, BLINDED
     Route: 065
     Dates: start: 20110210
  2. CYCLOPHOSPHAMIDE [Concomitant]
     Indication: NEOPLASM MALIGNANT
     Dosage: 600 MG/M2, UNK
     Route: 040
     Dates: start: 20110210
  3. PACLITAXEL [Concomitant]
     Indication: NEOPLASM MALIGNANT
     Dosage: 80 MG/M2, UNK
     Route: 042
     Dates: start: 20110210
  4. PEGFILGRASTIM [Suspect]
     Indication: NEOPLASM MALIGNANT
     Dosage: 6 MG, UNK
     Dates: start: 20110210
  5. DOXORUBICIN HCL [Concomitant]
     Indication: NEOPLASM MALIGNANT
     Dosage: 60 MG/M2, UNK
     Route: 015
     Dates: start: 20110210

REACTIONS (2)
  - DEPRESSION [None]
  - ANXIETY [None]
